FAERS Safety Report 20964603 (Version 3)
Quarter: 2022Q3

REPORT INFORMATION
  Report Type: Spontaneous
  Country: JP (occurrence: JP)
  Receive Date: 20220615
  Receipt Date: 20220719
  Transmission Date: 20221027
  Serious: Yes (Hospitalization)
  Sender: FDA-Public Use
  Company Number: JP-MSD-2206JPN000907J

PATIENT
  Age: 97 Year
  Sex: Female
  Weight: 33 kg

DRUGS (7)
  1. LAGEVRIO [Suspect]
     Active Substance: MOLNUPIRAVIR
     Indication: COVID-19 treatment
     Dosage: 800 MILLIGRAM, BID
     Route: 048
     Dates: start: 20220503, end: 20220504
  2. SODIUM FERROUS CITRATE [Concomitant]
     Active Substance: SODIUM FERROUS CITRATE
     Dosage: 50 MILLIGRAM, QD
     Route: 048
     Dates: end: 20220504
  3. LANSOPRAZOLE [Concomitant]
     Active Substance: LANSOPRAZOLE
     Dosage: 15 MILLIGRAM, QD
     Route: 048
     Dates: end: 20220504
  4. MAGNESIUM OXIDE [Concomitant]
     Active Substance: MAGNESIUM OXIDE
     Dosage: 330 MG (DAYTIME), 660 MG (EVENING)/DAY
     Route: 048
     Dates: end: 20220504
  5. XALATAN [Concomitant]
     Active Substance: LATANOPROST
     Dosage: UNK, QD,BOTH EYES
     Route: 047
  6. HYALURONATE SODIUM [Concomitant]
     Active Substance: HYALURONATE SODIUM
     Dosage: UNK, QID,BOTH EYES
     Route: 047
  7. TIMOLOL [Concomitant]
     Active Substance: TIMOLOL
     Dosage: UNK, QD,BOTH EYES
     Route: 047

REACTIONS (4)
  - COVID-19 [Recovered/Resolved]
  - Sputum increased [Recovering/Resolving]
  - Hypophagia [Recovered/Resolved]
  - Fluid intake reduced [Recovered/Resolved]

NARRATIVE: CASE EVENT DATE: 20220504
